FAERS Safety Report 6050196-3 (Version None)
Quarter: 2009Q1

REPORT INFORMATION
  Report Type: 
  Country: None (occurrence: None)
  Receive Date: 20090121
  Receipt Date: 20090105
  Transmission Date: 20090719
  Serious: Yes (Hospitalization)
  Sender: FDA-Public Use
  Company Number: DSM-2009-00005

PATIENT
  Age: 94 Year
  Sex: Female

DRUGS (6)
  1. OLMETEC PLUS (HYDROCHLOROTHIAZIDE, OLMESARTAN MEDOXOMIL) (20 MILLIGRAM [Suspect]
     Indication: ESSENTIAL HYPERTENSION
     Dosage: 20 MG (20 MG, 1 IN 1 D), ORAL
     Route: 048
     Dates: end: 20081114
  2. LEXOTANL (BROMAZEPAM) (3 MILLIGRAM, TABLET) (BROMAZEPAM) [Suspect]
     Dosage: 3 MG (3 MG, 1 IN 1 D), ORAL
     Route: 048
  3. STILNOX (ZOLPIDEM TARTRATE) (10 MILLIGRAM, TABLET) (ZOLPIDEM TARTRATE) [Suspect]
     Dosage: 10 MG 10 MG, 1 IN  1 D, ORAL
     Route: 048
     Dates: end: 20081114
  4. CORDARONE [Concomitant]
  5. ASPIRIN CARDIO (ACETYLSALICYLIC ACID) (ACETYLSALICYLIC ACID) [Concomitant]
  6. KCI HAUSMANN (POTASSIUM CHLORIDE) (POTASSIUM CHLORIDE) [Concomitant]

REACTIONS (8)
  - BALANCE DISORDER [None]
  - FALL [None]
  - HEAD INJURY [None]
  - HYPERCALCAEMIA [None]
  - HYPOKALAEMIA [None]
  - LOSS OF CONSCIOUSNESS [None]
  - ORTHOSTATIC HYPOTENSION [None]
  - VERTIGO [None]
